FAERS Safety Report 8060905-X (Version None)
Quarter: 2012Q1

REPORT INFORMATION
  Report Type: 
  Country: None (occurrence: None)
  Receive Date: 20120120
  Receipt Date: 20110224
  Transmission Date: 20120608
  Serious: No
  Sender: FDA-Public Use
  Company Number: US-ALLERGAN-1102667US

PATIENT
  Age: 61 Year
  Sex: Male

DRUGS (2)
  1. RESTASIS [Suspect]
     Indication: DRY EYE
     Dosage: 1 GTT, BID
     Route: 047
     Dates: start: 20101213, end: 20110101
  2. SYSTANE [Concomitant]
     Indication: SJOGREN'S SYNDROME
     Dosage: UNK
     Route: 047

REACTIONS (1)
  - VISION BLURRED [None]
